FAERS Safety Report 4716295-0 (Version None)
Quarter: 2005Q3

REPORT INFORMATION
  Report Type: 
  Country: None (occurrence: None)
  Receive Date: 20050711
  Receipt Date: 20040624
  Transmission Date: 20060218
  Serious: Yes (Other)
  Sender: FDA-Public Use
  Company Number: 365751

PATIENT
  Sex: Male

DRUGS (2)
  1. CELLCEPT [Suspect]
     Indication: PROPHYLAXIS AGAINST TRANSPLANT REJECTION
     Dosage: ORAL
     Route: 048
  2. CELLCEPT [Suspect]
     Indication: RENAL TRANSPLANT
     Dosage: ORAL
     Route: 048

REACTIONS (2)
  - HYPERGLYCAEMIA [None]
  - HYPOGLYCAEMIA [None]
